FAERS Safety Report 20264562 (Version 1)
Quarter: 2021Q4

REPORT INFORMATION
  Report Type: Spontaneous
  Country: RU (occurrence: RU)
  Receive Date: 20211231
  Receipt Date: 20211231
  Transmission Date: 20220303
  Serious: Yes (Hospitalization, Other)
  Sender: FDA-Public Use
  Company Number: RU-SA-2021SA428992

PATIENT
  Age: 62 Year
  Sex: Female

DRUGS (1)
  1. MYOZYME [Suspect]
     Active Substance: ALGLUCOSIDASE ALFA
     Dosage: 33 DF (VIALS) PER 1 INFUSION
     Route: 041
     Dates: start: 20211126

REACTIONS (5)
  - Coronavirus infection [Unknown]
  - Malaise [Unknown]
  - Body temperature abnormal [Unknown]
  - Asthenia [Unknown]
  - Pneumonia [Unknown]

NARRATIVE: CASE EVENT DATE: 20211217
